FAERS Safety Report 7460784-5 (Version None)
Quarter: 2011Q2

REPORT INFORMATION
  Report Type: 
  Country: None (occurrence: None)
  Receive Date: 20110505
  Receipt Date: 20110429
  Transmission Date: 20111010
  Serious: Yes (Hospitalization)
  Sender: FDA-Public Use
  Company Number: PHHO2011FR06307

PATIENT
  Sex: Male
  Weight: 62 kg

DRUGS (15)
  1. CELLCEPT [Concomitant]
     Indication: RENAL TRANSPLANT
     Dosage: 3 UNK, UNK
     Route: 048
     Dates: start: 20110317
  2. ATARAX [Concomitant]
  3. CORTANCYL [Concomitant]
     Dosage: 60 UNK, UNK
     Route: 048
     Dates: start: 20110319
  4. CARDENSIEL [Concomitant]
     Dosage: 2.5 MG, UNK
     Route: 048
     Dates: start: 20110322
  5. HYDROXYZINE [Concomitant]
     Dosage: 23 MG, UNK
     Route: 048
     Dates: start: 20110404
  6. KARDEGIC [Concomitant]
     Dosage: 75 UNK, UNK
     Dates: start: 20110319
  7. TRANSIPEG [Concomitant]
     Dosage: 2 SACHETS
  8. BACTRIM [Concomitant]
     Dosage: 400 UNK, UNK
     Route: 048
     Dates: start: 20110321
  9. LYRICA [Concomitant]
     Dosage: 60 MG, UNK
     Route: 048
     Dates: start: 20110404
  10. XATRAL [Concomitant]
     Dosage: 1 TABLET
     Route: 048
     Dates: start: 20110404
  11. RIVOTRIL [Concomitant]
     Dosage: 10 DROPS
     Dates: start: 20110328
  12. ROVALCYTE [Concomitant]
     Dosage: 450 UNK, UNK
     Route: 048
     Dates: start: 20110324
  13. NEORAL [Suspect]
     Indication: RENAL TRANSPLANT
     Dosage: 375 UNK, UNK
     Route: 048
     Dates: start: 20110318
  14. RANIPLEX [Concomitant]
  15. REPAGLINIDE [Concomitant]
     Dosage: 0.5 UNK, UNK
     Dates: start: 20110409

REACTIONS (2)
  - RENAL TUBULAR DISORDER [None]
  - LYMPHOCELE [None]
